FAERS Safety Report 19717651 (Version 1)
Quarter: 2021Q3

REPORT INFORMATION
  Report Type: Spontaneous
  Country: US (occurrence: US)
  Receive Date: 20210818
  Receipt Date: 20210818
  Transmission Date: 20211014
  Serious: No
  Sender: FDA-Public Use
  Company Number: None

PATIENT
  Age: 78 Year
  Sex: Male

DRUGS (1)
  1. TERBINAFINE (TERBINAFINE HCL 250MG TAB) [Suspect]
     Active Substance: TERBINAFINE HYDROCHLORIDE
     Route: 048
     Dates: start: 20210708, end: 20210726

REACTIONS (1)
  - Erythema multiforme [None]

NARRATIVE: CASE EVENT DATE: 20210715
